FAERS Safety Report 4331416-X (Version None)
Quarter: 2004Q2

REPORT INFORMATION
  Report Type: 
  Country: None (occurrence: None)
  Receive Date: 20040402
  Receipt Date: 20040402
  Transmission Date: 20050107
  Serious: Yes (Other)
  Sender: FDA-Public Use
  Company Number: None

PATIENT
  Age: 50 Year
  Sex: Female
  Weight: 81.6475 kg

DRUGS (2)
  1. PAXIL [Suspect]
     Indication: ANXIETY
     Dosage: 5 MG DAILY ORAL
     Route: 048
     Dates: start: 20020901, end: 20040325
  2. PAXIL [Suspect]
     Indication: DEPRESSION
     Dosage: 5 MG DAILY ORAL
     Route: 048
     Dates: start: 20020901, end: 20040325

REACTIONS (2)
  - DRUG WITHDRAWAL SYNDROME [None]
  - WEIGHT INCREASED [None]
